FAERS Safety Report 4990384-8 (Version None)
Quarter: 2006Q2

REPORT INFORMATION
  Report Type: 
  Country: None (occurrence: None)
  Receive Date: 20060427
  Receipt Date: 20060425
  Transmission Date: 20061013
  Serious: Yes (Hospitalization, Other)
  Sender: FDA-Public Use
  Company Number: HQWYE354616MAR06

PATIENT
  Age: 15 Year
  Sex: Female

DRUGS (1)
  1. ADVIL [Suspect]
     Dosage: 20 TABLETS PER 400 MG AND 30 TABLETS PER 200 MG (14 G = 241 MG/KR OF BODY WEIGHT), ORAL
     Route: 048

REACTIONS (6)
  - BLOOD PRESSURE SYSTOLIC INCREASED [None]
  - DRUG TOXICITY [None]
  - INTENTIONAL OVERDOSE [None]
  - NEUROLOGICAL SYMPTOM [None]
  - SOMNOLENCE [None]
  - SUICIDE ATTEMPT [None]
